FAERS Safety Report 24017025 (Version 1)
Quarter: 2024Q2

REPORT INFORMATION
  Report Type: Report from Study
  Country: JP (occurrence: JP)
  Receive Date: 20240626
  Receipt Date: 20240626
  Transmission Date: 20240716
  Serious: Yes (Hospitalization)
  Sender: FDA-Public Use
  Company Number: JP-JNJFOC-20240547909

PATIENT
  Age: 84 Year
  Sex: Male

DRUGS (10)
  1. APALUTAMIDE [Suspect]
     Active Substance: APALUTAMIDE
     Indication: Prostate cancer
     Route: 048
     Dates: start: 20240503
  2. MIROGABALIN BESYLATE [Concomitant]
     Active Substance: MIROGABALIN BESYLATE
     Indication: Pain
     Dosage: DOSE UNKNOWN, P.R.N
     Route: 048
  3. CALONAL [Concomitant]
     Active Substance: ACETAMINOPHEN
     Indication: Pain
     Dosage: DOSE UNKNOWN, P.R.N
     Route: 048
  4. DEGARELIX [Concomitant]
     Active Substance: DEGARELIX
     Indication: Prostate cancer metastatic
     Dosage: DOSE UNKNOWN
     Route: 058
     Dates: start: 20240509
  5. ANALGESICS, ANTIPRURITICS, ASTRINGENTS AND ANTI-INFLAMMATORY AGENTS [Concomitant]
     Indication: Pain
     Dosage: DOSE UNKNOWN
     Route: 062
  6. DEGARELIX [Concomitant]
     Active Substance: DEGARELIX
     Indication: Prostate cancer
     Dosage: DOSE UNKNOWN
     Route: 058
     Dates: start: 20240509
  7. BILASTINE [Concomitant]
     Active Substance: BILASTINE
     Indication: Pruritus
     Dosage: P.R.N, DOSE UNKNOWN
     Route: 048
     Dates: start: 20240523
  8. DIFLUPREDNATE [Concomitant]
     Active Substance: DIFLUPREDNATE
     Indication: Pruritus
     Dosage: P.R.N, DOSE UNKNOWN
     Route: 061
     Dates: start: 20240523
  9. CALCIUM SENNOSIDES [Concomitant]
     Active Substance: SENNOSIDES
     Indication: Constipation
     Dosage: P.R.N
     Route: 048
     Dates: start: 2024
  10. CALCIUM COMPOUNDS [Concomitant]
     Route: 048

REACTIONS (7)
  - Large intestine polyp [Not Recovered/Not Resolved]
  - Injection site pain [Not Recovered/Not Resolved]
  - Pruritus [Recovering/Resolving]
  - Constipation [Recovering/Resolving]
  - Eczema [Recovering/Resolving]
  - Blood alkaline phosphatase increased [Not Recovered/Not Resolved]
  - Product dose omission issue [Recovered/Resolved]

NARRATIVE: CASE EVENT DATE: 20240101
